FAERS Safety Report 4802518-6 (Version None)
Quarter: 2005Q4

REPORT INFORMATION
  Report Type: 
  Country: None (occurrence: None)
  Receive Date: 20051014
  Receipt Date: 20041216
  Transmission Date: 20060501
  Serious: Yes (Other)
  Sender: FDA-Public Use
  Company Number: 2004108988

PATIENT
  Sex: Male
  Weight: 79.3795 kg

DRUGS (13)
  1. NEURONTIN [Suspect]
     Indication: NEURALGIA
     Dosage: (6 IN 1 D), ORAL
     Route: 048
     Dates: start: 20030101, end: 20030101
  2. BEXTRA [Suspect]
     Indication: PAIN
     Dosage: 20 MG (20 MG, 1 IN 1 D), ORAL
     Route: 048
     Dates: start: 20040101, end: 20040201
  3. ALL OTHER THERAPEUTIC PRODUCTS (ALL OTHER THERAPEUTIC PRODUCTS) [Concomitant]
  4. ESOMEPRAZOLE (ESOMEPRAZOLE) [Concomitant]
  5. ATENOLOL [Concomitant]
  6. FOLIC ACID [Concomitant]
  7. ENALAPRIL MALEATE [Concomitant]
  8. CLOPIDOGREL BISULFATE [Concomitant]
  9. SIMVASTATIN [Concomitant]
  10. DOXAZOSIN MESYLATE [Concomitant]
  11. AMITRIPTYLINE HYDROCHLORIDE [Concomitant]
  12. INSULIN GLARGINE (INSULIN GLARGINE) [Concomitant]
  13. INSULIN LISPRO (INSULIN LISPRO) [Concomitant]

REACTIONS (4)
  - BLOOD URINE PRESENT [None]
  - DRUG INEFFECTIVE [None]
  - FULL BLOOD COUNT DECREASED [None]
  - PAIN [None]
